FAERS Safety Report 24636528 (Version 1)
Quarter: 2024Q4

REPORT INFORMATION
  Report Type: Spontaneous
  Country: KR (occurrence: KR)
  Receive Date: 20241119
  Receipt Date: 20241119
  Transmission Date: 20250115
  Serious: Yes (Death)
  Sender: AMGEN
  Company Number: KR-AMGEN-KORSP2024226722

PATIENT

DRUGS (1)
  1. XGEVA [Suspect]
     Active Substance: DENOSUMAB
     Indication: Product used for unknown indication
     Dosage: UNK (HIGH-DOSE), INJECTION
     Route: 065

REACTIONS (1)
  - Death [Fatal]
